FAERS Safety Report 9519428 (Version 7)
Quarter: 2014Q3

REPORT INFORMATION
  Report Type: Spontaneous
  Country: US (occurrence: US)
  Receive Date: 20130912
  Receipt Date: 20140916
  Transmission Date: 20150326
  Serious: Yes (Hospitalization)
  Sender: FDA-Public Use
  Company Number: US-GLAXOSMITHKLINE-A1041076A

PATIENT
  Age: 85 Year
  Sex: Female

DRUGS (10)
  1. RYTHMOL SR [Suspect]
     Active Substance: PROPAFENONE HYDROCHLORIDE
     Indication: ATRIAL FIBRILLATION
     Dosage: 225MG TWICE PER DAY
     Route: 048
     Dates: start: 20100630
  2. LORAZEPAM. [Concomitant]
     Active Substance: LORAZEPAM
  3. OMEPRAZOLE. [Concomitant]
     Active Substance: OMEPRAZOLE
  4. COUMADIN [Concomitant]
     Active Substance: WARFARIN SODIUM
  5. PROPAFENONE HYDROCHLORIDE SR [Suspect]
     Active Substance: PROPAFENONE HYDROCHLORIDE
     Indication: ATRIAL FIBRILLATION
     Dosage: 225MG TWICE PER DAY
     Dates: start: 201401, end: 20140420
  6. WARFARIN [Concomitant]
     Active Substance: WARFARIN
  7. VESICARE [Concomitant]
     Active Substance: SOLIFENACIN SUCCINATE
  8. NADOLOL. [Concomitant]
     Active Substance: NADOLOL
  9. VITAMIN [Concomitant]
     Active Substance: VITAMINS
  10. MULTIVITAMIN [Concomitant]
     Active Substance: VITAMINS

REACTIONS (7)
  - Rehabilitation therapy [Recovered/Resolved]
  - Fall [Recovered/Resolved]
  - Macular degeneration [Not Recovered/Not Resolved]
  - Visual acuity reduced [Unknown]
  - Femur fracture [Recovered/Resolved]
  - Blindness [Not Recovered/Not Resolved]
  - Atrial fibrillation [Recovered/Resolved]

NARRATIVE: CASE EVENT DATE: 2014
